FAERS Safety Report 10112300 (Version 1)
Quarter: 2014Q2

REPORT INFORMATION
  Report Type: Spontaneous
  Country: US (occurrence: US)
  Receive Date: 20140425
  Receipt Date: 20140425
  Transmission Date: 20141212
  Serious: No
  Sender: FDA-Public Use
  Company Number: US-009507513-1404USA009830

PATIENT
  Age: 30 Year
  Sex: Female

DRUGS (3)
  1. FOLLISTIM [Suspect]
     Indication: OVULATION INDUCTION
     Dosage: 125 IU, DAILY
  2. FOLLISTIM [Suspect]
     Dosage: 300 IU, DAILY
  3. GONADOTROPIN, CHORIONIC [Concomitant]

REACTIONS (2)
  - Drug ineffective [Unknown]
  - Maternal exposure during pregnancy [Unknown]
